FAERS Safety Report 9902649 (Version 1)
Quarter: 2014Q1

REPORT INFORMATION
  Report Type: Spontaneous
  Country: GB (occurrence: GB)
  Receive Date: 20140217
  Receipt Date: 20140217
  Transmission Date: 20141002
  Serious: Yes (Other)
  Sender: FDA-Public Use
  Company Number: GB-ASTRAZENECA-2014SE08783

PATIENT
  Age: 15 Year
  Sex: Female
  Weight: 51.6 kg

DRUGS (5)
  1. LIGNOCAINE HYDROCHLORIDE [Suspect]
     Indication: STATUS EPILEPTICUS
     Route: 042
  2. LIGNOCAINE HYDROCHLORIDE [Suspect]
     Indication: STATUS EPILEPTICUS
     Route: 042
  3. ANTIBIOTICS NOS [Concomitant]
  4. ANTIEPILEPTIC [Concomitant]
  5. STEROIDS NOS [Concomitant]

REACTIONS (1)
  - Pupil fixed [Recovered/Resolved]
